FAERS Safety Report 9315651 (Version 1)
Quarter: 2013Q2

REPORT INFORMATION
  Report Type: Spontaneous
  Country: US (occurrence: US)
  Receive Date: 20130529
  Receipt Date: 20130529
  Transmission Date: 20140414
  Serious: Yes (Other)
  Sender: FDA-Public Use
  Company Number: CHPA2013US008892

PATIENT
  Sex: Male
  Weight: 63.49 kg

DRUGS (3)
  1. VOLTAREN GEL [Suspect]
     Indication: ABDOMINAL PAIN
     Dosage: 1-2 G, QID
     Route: 061
  2. TRILEPTAL [Concomitant]
     Dosage: 150 MG, BID
  3. ZANAFLEX [Concomitant]
     Dosage: 2 MG, UNK

REACTIONS (3)
  - Ulcer [Unknown]
  - Malaise [Unknown]
  - Drug ineffective for unapproved indication [Unknown]
